FAERS Safety Report 10669861 (Version 1)
Quarter: 2014Q4

REPORT INFORMATION
  Report Type: Spontaneous
  Country: TR (occurrence: TR)
  Receive Date: 20141222
  Receipt Date: 20141222
  Transmission Date: 20150529
  Serious: Yes (Other)
  Sender: FDA-Public Use
  Company Number: ALCN2014TR006976

PATIENT
  Age: 43 Year
  Sex: Female

DRUGS (1)
  1. NEPAFENAC [Suspect]
     Active Substance: NEPAFENAC
     Dosage: 1 GTT, QID
     Route: 047

REACTIONS (7)
  - Photophobia [Recovered/Resolved]
  - Drug ineffective [Unknown]
  - Corneal thinning [Recovered/Resolved]
  - Corneal infiltrates [Recovered/Resolved]
  - Ocular hyperaemia [Recovered/Resolved]
  - Ulcerative keratitis [Recovered/Resolved]
  - Eye pain [Recovered/Resolved]
